FAERS Safety Report 11168351 (Version 2)
Quarter: 2015Q2

REPORT INFORMATION
  Report Type: Spontaneous
  Country: US (occurrence: US)
  Receive Date: 20150605
  Receipt Date: 20150610
  Transmission Date: 20150821
  Serious: Yes (Hospitalization, Other)
  Sender: FDA-Public Use
  Company Number: US-UNITED THERAPEUTICS-UNT-2015-006432

PATIENT
  Age: 66 Year
  Sex: Female
  Weight: 68.93 kg

DRUGS (3)
  1. REMODULIN [Suspect]
     Active Substance: TREPROSTINIL
     Indication: PULMONARY HYPERTENSION
     Dosage: 0.126 ?G/KG, CONTINUING
     Route: 058
     Dates: start: 20100406
  2. REMODULIN [Suspect]
     Active Substance: TREPROSTINIL
     Dosage: 0.126 ?G/KG, CONTINUING
     Route: 058
     Dates: start: 20100503
  3. ADCIRCA [Concomitant]
     Active Substance: TADALAFIL
     Indication: PRODUCT USED FOR UNKNOWN INDICATION

REACTIONS (7)
  - Device dislocation [Unknown]
  - Heart rate increased [Unknown]
  - Drug dose omission [Unknown]
  - Atrial fibrillation [Unknown]
  - Dyspnoea [Unknown]
  - Oxygen saturation decreased [Unknown]
  - Intestinal obstruction [Unknown]

NARRATIVE: CASE EVENT DATE: 201505
